FAERS Safety Report 21477743 (Version 1)
Quarter: 2022Q4

REPORT INFORMATION
  Report Type: Spontaneous
  Country: IN (occurrence: None)
  Receive Date: 20221018
  Receipt Date: 20221018
  Transmission Date: 20230113
  Serious: Yes (Life-Threatening, Hospitalization, Disabling, Other)
  Sender: FDA-Public Use
  Company Number: None

PATIENT
  Age: 38 Year
  Sex: Male
  Weight: 84 kg

DRUGS (4)
  1. FYCOMPA [Suspect]
     Active Substance: PERAMPANEL
  2. FYCOMPA [Concomitant]
     Active Substance: PERAMPANEL
  3. Zenretard [Concomitant]
  4. FOLIC ACID [Concomitant]
     Active Substance: FOLIC ACID

REACTIONS (6)
  - Intellectual disability [None]
  - Attention deficit hyperactivity disorder [None]
  - Suicidal ideation [None]
  - Irritability [None]
  - Self-destructive behaviour [None]
  - Suspiciousness [None]

NARRATIVE: CASE EVENT DATE: 20221007
